FAERS Safety Report 6827671-4 (Version None)
Quarter: 2010Q3

REPORT INFORMATION
  Report Type: 
  Country: None (occurrence: None)
  Receive Date: 20100709
  Receipt Date: 20070123
  Transmission Date: 20110219
  Serious: Yes (Other)
  Sender: FDA-Public Use
  Company Number: US-PFIZER INC-2007006852

PATIENT
  Sex: Female
  Weight: 68 kg

DRUGS (3)
  1. CHANTIX [Suspect]
     Indication: SMOKING CESSATION THERAPY
     Dates: start: 20061219, end: 20061223
  2. LIPITOR [Concomitant]
  3. ANTIBIOTICS [Concomitant]

REACTIONS (3)
  - HEADACHE [None]
  - HYPERTENSION [None]
  - NAUSEA [None]
